FAERS Safety Report 4739124-8 (Version None)
Quarter: 2005Q3

REPORT INFORMATION
  Report Type: 
  Country: None (occurrence: None)
  Receive Date: 20050810
  Receipt Date: 20050420
  Transmission Date: 20060218
  Serious: No
  Sender: FDA-Public Use
  Company Number: US-GLAXOSMITHKLINE-A0555020A

PATIENT
  Age: 73 Year
  Sex: Female

DRUGS (6)
  1. PAXIL CR [Suspect]
     Indication: DEPRESSION
     Dosage: 25MG PER DAY
     Route: 048
     Dates: end: 20050409
  2. RELAFEN [Concomitant]
  3. TAMOXIFEN [Concomitant]
  4. FOSAMAX [Concomitant]
     Route: 065
  5. VITAMINS [Concomitant]
     Route: 065
  6. CALCIUM GLUCONATE [Concomitant]

REACTIONS (7)
  - ABNORMAL DREAMS [None]
  - ASTHENIA [None]
  - DECREASED APPETITE [None]
  - HYPERHIDROSIS [None]
  - NAUSEA [None]
  - SOMNOLENCE [None]
  - VITREOUS FLOATERS [None]
